FAERS Safety Report 22111712 (Version 1)
Quarter: 2023Q1

REPORT INFORMATION
  Report Type: Spontaneous
  Country: US (occurrence: US)
  Receive Date: 20230318
  Receipt Date: 20230318
  Transmission Date: 20230417
  Serious: Yes (Hospitalization)
  Sender: FDA-Public Use
  Company Number: US-drreddys-LIT/USA/23/0162490

PATIENT
  Age: 68 Year
  Sex: Female

DRUGS (7)
  1. ATORVASTATIN [Suspect]
     Active Substance: ATORVASTATIN
     Indication: Product used for unknown indication
  2. FLUOXETINE [Suspect]
     Active Substance: FLUOXETINE HYDROCHLORIDE
     Indication: Product used for unknown indication
  3. HYDROXYZINE HYDROCHLORIDE [Suspect]
     Active Substance: HYDROXYZINE HYDROCHLORIDE
     Indication: Product used for unknown indication
  4. ALBUTEROL [Suspect]
     Active Substance: ALBUTEROL
     Indication: Product used for unknown indication
  5. ARIPIPRAZOLE [Suspect]
     Active Substance: ARIPIPRAZOLE
     Indication: Product used for unknown indication
  6. BUSPIRONE [Suspect]
     Active Substance: BUSPIRONE HYDROCHLORIDE
     Indication: Product used for unknown indication
  7. LOSARTAN [Suspect]
     Active Substance: LOSARTAN
     Indication: Product used for unknown indication

REACTIONS (4)
  - Generalised tonic-clonic seizure [Recovered/Resolved]
  - Hypotension [Unknown]
  - Joint dislocation [Recovered/Resolved]
  - Fall [Unknown]
